FAERS Safety Report 23969303 (Version 1)
Quarter: 2024Q2

REPORT INFORMATION
  Report Type: Spontaneous
  Country: US (occurrence: US)
  Receive Date: 20240612
  Receipt Date: 20240612
  Transmission Date: 20240716
  Serious: No
  Sender: FDA-Public Use
  Company Number: US-Blueprint Medicines Corporation-3850

PATIENT
  Sex: Female

DRUGS (1)
  1. AYVAKIT [Suspect]
     Active Substance: AVAPRITINIB
     Indication: Gastrointestinal stromal tumour
     Route: 048

REACTIONS (6)
  - Gait disturbance [Unknown]
  - Hair colour changes [Unknown]
  - Lacrimation increased [Unknown]
  - Pollakiuria [Unknown]
  - Feeling cold [Unknown]
  - Urinary tract infection [Unknown]
